FAERS Safety Report 5926156-7 (Version None)
Quarter: 2008Q4

REPORT INFORMATION
  Report Type: 
  Country: None (occurrence: None)
  Receive Date: 20081017
  Receipt Date: 20081010
  Transmission Date: 20090506
  Serious: Yes (Death)
  Sender: FDA-Public Use
  Company Number: 2008-185204-NL

PATIENT
  Age: 31 Year
  Sex: Female

DRUGS (1)
  1. NUVARING [Suspect]
     Indication: CONTRACEPTION
     Dosage: NI VAGINAL
     Route: 067
     Dates: start: 20080122, end: 20080227

REACTIONS (1)
  - EMBOLISM [None]
